FAERS Safety Report 22259194 (Version 2)
Quarter: 2023Q2

REPORT INFORMATION
  Report Type: Spontaneous
  Country: DE (occurrence: DE)
  Receive Date: 20230427
  Receipt Date: 20230504
  Transmission Date: 20230721
  Serious: Yes (Hospitalization)
  Sender: FDA-Public Use
  Company Number: DE-SANOFI-01587839

PATIENT
  Sex: Female

DRUGS (1)
  1. BILASTINE [Suspect]
     Active Substance: BILASTINE
     Dosage: UNK

REACTIONS (1)
  - Hypertension [Unknown]
